APPROVED DRUG PRODUCT: ZORTRESS
Active Ingredient: EVEROLIMUS
Strength: 0.75MG
Dosage Form/Route: TABLET;ORAL
Application: N021560 | Product #003 | TE Code: AB
Applicant: NOVARTIS PHARMACEUTICALS CORP
Approved: Apr 20, 2010 | RLD: Yes | RS: No | Type: RX